FAERS Safety Report 22941428 (Version 2)
Quarter: 2025Q4

REPORT INFORMATION
  Report Type: Spontaneous
  Country: US (occurrence: None)
  Receive Date: 20230914
  Receipt Date: 20251119
  Transmission Date: 20260118
  Serious: Yes (Other)
  Sender: ENDO
  Company Number: US-ENDO PHARMACEUTICALS INC-2023-004947

PATIENT
  Sex: Male

DRUGS (3)
  1. TESTOPEL [Suspect]
     Active Substance: TESTOSTERONE
     Indication: Hypogonadism
     Dosage: UNK UNKNOWN, EVERY 6 MONTHS
  2. TESTOPEL [Suspect]
     Active Substance: TESTOSTERONE
  3. TESTOPEL [Suspect]
     Active Substance: TESTOSTERONE

REACTIONS (4)
  - Malignant melanoma stage 0 [Unknown]
  - Panniculitis [Unknown]
  - Wound drainage [Unknown]
  - Product solubility abnormal [Unknown]
